FAERS Safety Report 6191044-0 (Version None)
Quarter: 2009Q2

REPORT INFORMATION
  Report Type: 
  Country: None (occurrence: None)
  Receive Date: 20090513
  Receipt Date: 20090427
  Transmission Date: 20091009
  Serious: Yes (Death, Life-Threatening, Hospitalization, Other)
  Sender: FDA-Public Use
  Company Number: ADE# 09-170DPR

PATIENT
  Age: 83 Year
  Sex: Female

DRUGS (6)
  1. DIGOXIN [Suspect]
     Indication: CARDIAC OPERATION
     Dosage: ONCE A DAY/4 YEARS AGO
  2. CARDIZEM [Concomitant]
  3. COUMADIN [Concomitant]
  4. NEURONTIN [Concomitant]
  5. DARVOCET [Concomitant]
  6. ALTACE [Concomitant]

REACTIONS (14)
  - BLOOD COUNT ABNORMAL [None]
  - BLOOD PRESSURE DECREASED [None]
  - CARDIAC FAILURE CONGESTIVE [None]
  - DIZZINESS [None]
  - DRUG INEFFECTIVE [None]
  - HEPATIC MASS [None]
  - LUNG DISORDER [None]
  - METASTASIS [None]
  - NAUSEA [None]
  - PULMONARY MASS [None]
  - PULMONARY OEDEMA [None]
  - SEPSIS [None]
  - TUMOUR LOCAL INVASION [None]
  - VOMITING [None]
